FAERS Safety Report 24665608 (Version 1)
Quarter: 2024Q4

REPORT INFORMATION
  Report Type: Spontaneous
  Country: CH (occurrence: CH)
  Receive Date: 20241126
  Receipt Date: 20241126
  Transmission Date: 20250114
  Serious: Yes (Death, Hospitalization, Other)
  Sender: MERCK
  Company Number: None

PATIENT
  Age: 65 Year
  Sex: Male

DRUGS (24)
  1. KEYTRUDA [Suspect]
     Active Substance: PEMBROLIZUMAB
     Indication: Lung adenocarcinoma
     Dosage: Q3W, GIVEN TOGETHER WITH CARBOPLATIN AND PEMETREXED, SECOND CYCLE ON 03JUL2024, LAST INTAKE CORRESPO
     Route: 040
     Dates: start: 20240613, end: 20240724
  2. CARBOPLATIN [Concomitant]
     Active Substance: CARBOPLATIN
     Dosage: UNK, CYCLICAL
     Route: 040
     Dates: start: 20240613, end: 20240724
  3. PEMETREXED [Concomitant]
     Active Substance: PEMETREXED
     Dosage: UNK, CYCLICAL
     Route: 040
     Dates: start: 20240613, end: 20240724
  4. PANTOPRAZOLE SODIUM [Concomitant]
     Active Substance: PANTOPRAZOLE SODIUM
     Dosage: SEIT MIND. 10.05.2024
     Dates: start: 20240510
  5. AMLODIPINE [Concomitant]
     Active Substance: AMLODIPINE BESYLATE
     Dosage: SEIT MIND. 10.05.2024
     Dates: start: 20240510
  6. PERINDOPRIL [Concomitant]
     Active Substance: PERINDOPRIL
     Dosage: SEIT MIND. 10.05.2024
     Dates: start: 20240510
  7. FRAGMIN [Concomitant]
     Active Substance: DALTEPARIN SODIUM
     Dosage: 5000 (I.E.)/0.2 ML, SEIT MIND. 10.05.2024
     Dates: start: 20240510
  8. POLYETHYLENE GLYCOL 3350\POTASSIUM CHLORIDE\SODIUM BICARBONATE\SODIUM [Concomitant]
     Active Substance: POLYETHYLENE GLYCOL 3350\POTASSIUM CHLORIDE\SODIUM BICARBONATE\SODIUM CHLORIDE
     Dosage: SEIT MIND. 10.05.2024
     Dates: start: 20240510
  9. DAFALGAN [Concomitant]
     Active Substance: ACETAMINOPHEN
     Dosage: SEIT MIND. 10.05.2024
     Dates: start: 20240510
  10. ONDANSETRON [Concomitant]
     Active Substance: ONDANSETRON
     Dates: start: 20240603
  11. MORPHINE HYDROCHLORIDE [Concomitant]
     Active Substance: MORPHINE HYDROCHLORIDE
     Dates: start: 20240603
  12. LORAZEPAM [Concomitant]
     Active Substance: LORAZEPAM
     Dates: start: 20240603
  13. REMIFENTANIL HYDROCHLORIDE [Concomitant]
     Active Substance: REMIFENTANIL HYDROCHLORIDE
     Dates: start: 20240603
  14. SODIUM PICOSULFATE [Concomitant]
     Active Substance: SODIUM PICOSULFATE
     Dosage: 7.5 MG/ML
     Dates: start: 20240603
  15. DUPHALAC [Concomitant]
     Active Substance: LACTULOSE
     Dates: start: 20240603
  16. ACETAMINOPHEN [Concomitant]
     Active Substance: ACETAMINOPHEN
     Dosage: 0.1 G/ML
     Dates: start: 20240716
  17. ELIQUIS [Concomitant]
     Active Substance: APIXABAN
     Dates: start: 20240821
  18. TORSEMIDE [Concomitant]
     Active Substance: TORSEMIDE
     Dates: start: 20240821
  19. METOPROLOL SUCCINATE [Concomitant]
     Active Substance: METOPROLOL SUCCINATE
     Dates: start: 20240821
  20. BUTYLSCOPOLAMINE BROMIDE [Concomitant]
     Active Substance: BUTYLSCOPOLAMINE BROMIDE
     Dosage: 20 MG/ML
     Dates: start: 20240821
  21. ASPIRIN [Concomitant]
     Active Substance: ASPIRIN
     Dosage: SEIT MIND. 10.05.2024
     Dates: start: 20240510, end: 20240717
  22. CODEINE PHOSPHATE\GUAIFENESIN [Concomitant]
     Active Substance: CODEINE PHOSPHATE\GUAIFENESIN
     Dosage: SEIT MIND. 10.05.2024
     Dates: start: 20240510, end: 20240821
  23. COVERAM [Concomitant]
     Active Substance: AMLODIPINE\PERINDOPRIL
     Dates: start: 20240603, end: 20240821
  24. PASPERTIN [LAUROMACROGOL 400;METOCLOPRAMIDE] [Concomitant]
     Dates: start: 20240603, end: 20240821

REACTIONS (2)
  - Vasculitis [Fatal]
  - Intestinal ischaemia [Fatal]

NARRATIVE: CASE EVENT DATE: 20240915
